FAERS Safety Report 24611110 (Version 2)
Quarter: 2024Q4

REPORT INFORMATION
  Report Type: Other
  Country: GB (occurrence: GB)
  Receive Date: 20241113
  Receipt Date: 20241113
  Transmission Date: 20250115
  Serious: Yes (Other)
  Sender: STRIDES
  Company Number: None

PATIENT
  Age: 55 Year
  Sex: Male
  Weight: 81 kg

DRUGS (15)
  1. VANCOMYCIN [Suspect]
     Active Substance: VANCOMYCIN
     Indication: Ill-defined disorder
     Dosage: UNK, CAPSULE HARD
     Route: 065
     Dates: start: 20241025
  2. ONDANSETRON [Concomitant]
     Active Substance: ONDANSETRON
     Indication: Ill-defined disorder
     Dosage: UNK, BID, TAKE ONE
     Route: 065
     Dates: start: 20240917
  3. CLARITHROMYCIN [Concomitant]
     Active Substance: CLARITHROMYCIN
     Indication: Ill-defined disorder
     Dosage: TAKE ONE TIWCE A DAY FOR 7 DAYS
     Route: 065
     Dates: start: 20240904, end: 20240906
  4. ACAMPROSATE CALCIUM [Concomitant]
     Active Substance: ACAMPROSATE CALCIUM
     Indication: Ill-defined disorder
     Dosage: TAKE 2 THREE TIMES A DAY
     Route: 065
     Dates: start: 20230927, end: 20240808
  5. Calogen [Concomitant]
     Indication: Ill-defined disorder
     Dosage: UNK,TAKE 30ML THREE TIMES A DAY
     Route: 065
     Dates: start: 20230927, end: 20240808
  6. FOLIC ACID [Concomitant]
     Active Substance: FOLIC ACID
     Indication: Ill-defined disorder
     Dosage: UNK, TAKE ONE DAILY
     Route: 065
     Dates: start: 20230927, end: 20240808
  7. POTASSIUM BICARBONATE\SODIUM ALGINATE [Concomitant]
     Active Substance: POTASSIUM BICARBONATE\SODIUM ALGINATE
     Indication: Ill-defined disorder
     Dosage: UNK, 5ML - 10ML 4 TIMES/DAY
     Route: 065
     Dates: start: 20230927
  8. THIAMINE [Concomitant]
     Active Substance: THIAMINE
     Indication: Ill-defined disorder
     Dosage: UNK,TAKE ONE THREE TIMES A DAY
     Route: 065
     Dates: start: 20230927
  9. NIACINAMIDE\PYRIDOXINE HYDROCHLORIDE\RIBOFLAVIN\THIAMINE HYDROCHLORIDE [Concomitant]
     Active Substance: NIACINAMIDE\PYRIDOXINE HYDROCHLORIDE\RIBOFLAVIN\THIAMINE HYDROCHLORIDE
     Indication: Ill-defined disorder
     Dosage: UNK, TAKE TWO THREE TIMES A DAY
     Route: 065
     Dates: start: 20230927
  10. LOPERAMIDE [Concomitant]
     Active Substance: LOPERAMIDE
     Indication: Ill-defined disorder
     Dosage: UNK, USE AS DIRECTED
     Route: 065
     Dates: start: 20240223
  11. FLUOXETINE [Concomitant]
     Active Substance: FLUOXETINE HYDROCHLORIDE
     Indication: Ill-defined disorder
     Dosage: UNK, QD
     Route: 065
     Dates: start: 20240325
  12. OMEPRAZOLE [Concomitant]
     Active Substance: OMEPRAZOLE
     Indication: Ill-defined disorder
     Dosage: 40 MG, QD
     Route: 065
     Dates: start: 20240325
  13. HYDROXOCOBALAMIN [Concomitant]
     Active Substance: HYDROXOCOBALAMIN
     Indication: Ill-defined disorder
     Dosage: 1 MG, EVERY 3 MONTHS
     Route: 065
     Dates: start: 20240509
  14. FENTANYL [Concomitant]
     Active Substance: FENTANYL
     Indication: Ill-defined disorder
     Dosage: UNK, APPLY ONE EVERY 48 HOURS
     Route: 065
     Dates: start: 20240528
  15. ZOPICLONE [Concomitant]
     Active Substance: ZOPICLONE
     Indication: Ill-defined disorder
     Dosage: UNK, TAKE ONE AT NIGHT
     Route: 065
     Dates: start: 20240528

REACTIONS (2)
  - Angioedema [Recovered/Resolved]
  - Rash [Unknown]

NARRATIVE: CASE EVENT DATE: 20241025
